FAERS Safety Report 11389585 (Version 1)
Quarter: 2015Q3

REPORT INFORMATION
  Report Type: Spontaneous
  Country: US (occurrence: US)
  Receive Date: 20150817
  Receipt Date: 20150817
  Transmission Date: 20151125
  Serious: No
  Sender: FDA-Public Use
  Company Number: US-TAKEDA-2015TUS001171

PATIENT
  Sex: Female
  Weight: 56.69 kg

DRUGS (8)
  1. ROZEREM [Suspect]
     Active Substance: RAMELTEON
     Indication: INSOMNIA
     Dosage: 8 MG 1/2 DF QD
     Route: 048
     Dates: start: 201501, end: 201501
  2. ROZEREM [Suspect]
     Active Substance: RAMELTEON
     Dosage: 1 TABLET, QD
     Route: 048
     Dates: start: 201501, end: 201501
  3. ROZEREM [Suspect]
     Active Substance: RAMELTEON
     Dosage: 1 TABLET, QD
     Route: 048
     Dates: start: 201501, end: 201501
  4. SIMVASTATIN. [Concomitant]
     Active Substance: SIMVASTATIN
     Indication: BLOOD CHOLESTEROL INCREASED
     Dosage: 40 MG, QD
     Route: 048
  5. BABY ASPIRIN [Concomitant]
     Active Substance: ASPIRIN
     Dosage: 81 MG, QD
     Route: 048
  6. OTC MED FOR INDIGESTION [Concomitant]
     Indication: DYSPEPSIA
     Dosage: UNK
     Route: 048
  7. LOSARTAN. [Concomitant]
     Active Substance: LOSARTAN
     Indication: HYPERTENSION
     Dosage: 25 MG, QD
     Route: 048
  8. TAMIFLU [Concomitant]
     Active Substance: OSELTAMIVIR PHOSPHATE
     Indication: INFLUENZA
     Dosage: UNK
     Route: 048

REACTIONS (1)
  - Drug ineffective [Unknown]
